FAERS Safety Report 21094336 (Version 1)
Quarter: 2022Q3

REPORT INFORMATION
  Report Type: Spontaneous
  Country: US (occurrence: None)
  Receive Date: 20220716
  Receipt Date: 20220716
  Transmission Date: 20221027
  Serious: Yes (Hospitalization)
  Sender: FDA-Public Use
  Company Number: None

PATIENT
  Age: 69 Year
  Sex: Male
  Weight: 76.4 kg

DRUGS (2)
  1. CARBOPLATIN [Suspect]
     Active Substance: CARBOPLATIN
     Dates: end: 20220706
  2. TAXOL [Suspect]
     Active Substance: PACLITAXEL
     Dates: end: 20220706

REACTIONS (4)
  - Pyrexia [None]
  - Hypotension [None]
  - Clostridium difficile infection [None]
  - Therapy interrupted [None]

NARRATIVE: CASE EVENT DATE: 20220706
